FAERS Safety Report 25305804 (Version 1)
Quarter: 2025Q2

REPORT INFORMATION
  Report Type: Spontaneous
  Country: US (occurrence: None)
  Receive Date: 20250513
  Receipt Date: 20250513
  Transmission Date: 20250716
  Serious: Yes (Hospitalization)
  Sender: FDA-CTU
  Company Number: None

PATIENT
  Age: 33 Month
  Sex: Female
  Weight: 15.8 kg

DRUGS (6)
  1. CALASPARGASE PEGOL-MKNL [Suspect]
     Active Substance: CALASPARGASE PEGOL-MKNL
     Dates: end: 20250507
  2. CYCLOPHOSPHAMIDE [Suspect]
     Active Substance: CYCLOPHOSPHAMIDE
     Dates: end: 20250423
  3. CYTARABINE [Suspect]
     Active Substance: CYTARABINE
     Dates: end: 20250430
  4. METHOTREXATE [Suspect]
     Active Substance: METHOTREXATE
     Dates: end: 20250430
  5. THIOGUANINE ANHYDROUS [Suspect]
     Active Substance: THIOGUANINE ANHYDROUS
     Dates: end: 20250506
  6. VINCRISTINE SULFATE [Suspect]
     Active Substance: VINCRISTINE SULFATE
     Dates: end: 20250507

REACTIONS (3)
  - Venoocclusive liver disease [None]
  - Hepatic failure [None]
  - Haemofiltration [None]

NARRATIVE: CASE EVENT DATE: 20250508
